FAERS Safety Report 8557221-6 (Version None)
Quarter: 2012Q3

REPORT INFORMATION
  Report Type: 
  Country: None (occurrence: None)
  Receive Date: 20120801
  Receipt Date: 20120730
  Transmission Date: 20120928
  Serious: Yes (Hospitalization)
  Sender: FDA-Public Use
  Company Number: PHEH2012US014645

PATIENT
  Sex: Male

DRUGS (9)
  1. VITAMIN TAB [Concomitant]
     Dosage: UNK
  2. ASPIRIN [Concomitant]
  3. CARVEDILOL [Concomitant]
  4. CLOPIDOGREL [Concomitant]
     Dosage: 75 MG, UNK
  5. VALTURNA [Suspect]
  6. NIFEDIPINE [Concomitant]
  7. VALTURNA [Suspect]
     Dosage: 1 DF, DAILY
     Route: 048
     Dates: start: 20100701
  8. ALPRAZOLAM [Concomitant]
     Dosage: 0.5 MG, UNK
  9. CRESTOR [Concomitant]
     Dosage: 10 MG, UNK

REACTIONS (1)
  - CEREBROVASCULAR ACCIDENT [None]
